FAERS Safety Report 12769926 (Version 1)
Quarter: 2016Q3

REPORT INFORMATION
  Report Type: Spontaneous
  Country: SE (occurrence: SE)
  Receive Date: 20160922
  Receipt Date: 20160922
  Transmission Date: 20161109
  Serious: Yes (Hospitalization)
  Sender: FDA-Public Use
  Company Number: SE-CONCORDIA PHARMACEUTICALS INC.-GSH201609-004685

PATIENT
  Age: 70 Year
  Sex: Female

DRUGS (2)
  1. ENBREL [Suspect]
     Active Substance: ETANERCEPT
  2. PREDNISOLONE. [Suspect]
     Active Substance: PREDNISOLONE

REACTIONS (1)
  - Urosepsis [Recovered/Resolved]
